FAERS Safety Report 20120865 (Version 1)
Quarter: 2021Q4

REPORT INFORMATION
  Report Type: Report from Study
  Country: US (occurrence: None)
  Receive Date: 20211127
  Receipt Date: 20211127
  Transmission Date: 20220303
  Serious: Yes (Hospitalization)
  Sender: FDA-Public Use
  Company Number: US-ROCHE-2095455

PATIENT
  Age: 54 Year
  Sex: Male
  Weight: 111 kg

DRUGS (3)
  1. ATEZOLIZUMAB [Suspect]
     Active Substance: ATEZOLIZUMAB
     Indication: Colorectal cancer metastatic
     Route: 042
     Dates: start: 20180316
  2. CAPECITABINE [Suspect]
     Active Substance: CAPECITABINE
     Indication: Colorectal cancer metastatic
     Dosage: MOST RECENT DOSE (2500 MG) ON 18/MAR/2018?DAYS 1-14 OF  21 DAY CYCLE
     Route: 048
     Dates: start: 20180316
  3. BEVACIZUMAB [Suspect]
     Active Substance: BEVACIZUMAB
     Indication: Colorectal cancer metastatic
     Dosage: LAST DOSE 840 MG
     Route: 042
     Dates: start: 20180316

REACTIONS (1)
  - Pneumonia [Unknown]

NARRATIVE: CASE EVENT DATE: 20180318
